FAERS Safety Report 6655137-3 (Version None)
Quarter: 2010Q1

REPORT INFORMATION
  Report Type: 
  Country: None (occurrence: None)
  Receive Date: 20100329
  Receipt Date: 20100316
  Transmission Date: 20100710
  Serious: Yes (Hospitalization)
  Sender: FDA-Public Use
  Company Number: US-ALEXION-A201000212

PATIENT
  Sex: Female

DRUGS (13)
  1. SOLIRIS [Suspect]
     Indication: PAROXYSMAL NOCTURNAL HAEMOGLOBINURIA
     Dosage: 600 MG, QW
     Route: 042
     Dates: start: 20091012, end: 20091102
  2. SOLIRIS [Suspect]
     Dosage: 900 MG
     Route: 042
     Dates: start: 20091109, end: 20091109
  3. SOLIRIS [Suspect]
     Dosage: 900 MG, Q2W
     Route: 042
     Dates: start: 20091218
  4. COUMADIN [Suspect]
     Dosage: UNK
     Route: 048
  5. DIGOXIN [Concomitant]
     Dosage: UNK
  6. DIVALPROEX SODIUM [Concomitant]
     Dosage: 75 UG, QD
     Route: 048
  7. GABAPENTIN [Concomitant]
     Dosage: 400 MG, TID
     Route: 048
  8. EXJADE [Concomitant]
     Dosage: 500 MG, BID
     Route: 048
  9. FOLATE [Concomitant]
     Dosage: 1 MG, QD
     Route: 048
  10. LOPRESSOR [Concomitant]
     Dosage: 50 MG, Q8H
  11. LIPITOR [Concomitant]
     Dosage: 20 MG, QHS
     Route: 048
  12. ECOTRIN [Concomitant]
  13. DEPAKOTE [Concomitant]

REACTIONS (8)
  - ATRIAL FIBRILLATION [None]
  - BLOOD LACTATE DEHYDROGENASE INCREASED [None]
  - COLITIS [None]
  - DYSPHAGIA [None]
  - GINGIVAL BLEEDING [None]
  - PNEUMONIA KLEBSIELLA [None]
  - RENAL FAILURE [None]
  - URINARY TRACT INFECTION [None]
